FAERS Safety Report 10028721 (Version 1)
Quarter: 2014Q1

REPORT INFORMATION
  Report Type: Report from Study
  Country: CA (occurrence: CA)
  Receive Date: 20140321
  Receipt Date: 20140321
  Transmission Date: 20141002
  Serious: Yes (Other)
  Sender: FDA-Public Use
  Company Number: PHHY2014CA033801

PATIENT
  Age: 57 Year
  Sex: Female

DRUGS (2)
  1. SANDOSTATIN (OCTREOTIDE ACETATE) [Suspect]
     Indication: CARCINOID TUMOUR
     Dosage: UNK UKN, ONCE/SINGLE
     Route: 058
     Dates: start: 20131205
  2. SANDOSTATIN LAR [Suspect]
     Indication: CARCINOID TUMOUR
     Dosage: 30 MG, QMO
     Route: 030
     Dates: start: 20131220

REACTIONS (1)
  - Blood pressure diastolic decreased [Unknown]
